FAERS Safety Report 6444412-3 (Version None)
Quarter: 2009Q4

REPORT INFORMATION
  Report Type: 
  Country: None (occurrence: None)
  Receive Date: 20091118
  Receipt Date: 20091104
  Transmission Date: 20100525
  Serious: Yes (Other)
  Sender: FDA-Public Use
  Company Number: ES-ELI_LILLY_AND_COMPANY-ES200911004115

PATIENT
  Age: 77 Year
  Sex: Female

DRUGS (7)
  1. CYMBALTA [Suspect]
     Indication: DEPRESSION
     Dosage: 30 MG, DAILY (1/D)
     Route: 048
     Dates: start: 20090122, end: 20090124
  2. APROVEL [Concomitant]
     Indication: CARDIAC DISORDER
     Dosage: 150 MG, UNKNOWN
     Route: 048
     Dates: start: 20070112
  3. ARTEDIL [Concomitant]
     Indication: HEART ALTERNATION
     Dosage: 20 MG, UNKNOWN
     Route: 048
     Dates: start: 20070601
  4. IDALPREM [Concomitant]
     Indication: INSOMNIA
     Dosage: 5 MG, UNKNOWN
     Route: 048
     Dates: start: 20070619
  5. MIXTARD                                 /DEN/ [Concomitant]
     Indication: DIABETES MELLITUS
     Dosage: UNK, UNKNOWN
     Route: 058
     Dates: start: 20060101
  6. SEROPRAM [Concomitant]
     Indication: DEPRESSION
     Dosage: 30 MG, UNKNOWN
     Route: 048
     Dates: start: 20060101
  7. ZEMPLAR [Concomitant]
     Indication: HYPERPARATHYROIDISM
     Dosage: 1 UG/KG, UNKNOWN
     Route: 048
     Dates: start: 20081104

REACTIONS (1)
  - HYPOTENSION [None]
